FAERS Safety Report 4314105-7 (Version None)
Quarter: 2004Q1

REPORT INFORMATION
  Report Type: 
  Country: None (occurrence: None)
  Receive Date: 20040305
  Receipt Date: 20030410
  Transmission Date: 20041129
  Serious: Yes (Other)
  Sender: FDA-Public Use
  Company Number: 200316406BWH

PATIENT
  Age: 74 Year
  Sex: Female
  Weight: 42.1845 kg

DRUGS (3)
  1. CIPRO IV [Suspect]
     Indication: URINARY TRACT INFECTION
     Dosage: INTRAVENOUS
     Route: 042
  2. BETAPACE [Concomitant]
  3. PHENAZOPYRIDINE HCL TAB [Concomitant]

REACTIONS (4)
  - DIZZINESS [None]
  - HALLUCINATION [None]
  - NIGHTMARE [None]
  - SLEEP WALKING [None]
